FAERS Safety Report 8286290-6 (Version None)
Quarter: 2012Q2

REPORT INFORMATION
  Report Type: 
  Country: None (occurrence: None)
  Receive Date: 20120416
  Receipt Date: 20120405
  Transmission Date: 20120825
  Serious: Yes (Hospitalization, Other)
  Sender: FDA-Public Use
  Company Number: US-AMGEN-USASP2012021852

PATIENT
  Age: 45 Year
  Sex: Female

DRUGS (2)
  1. TREXALL [Concomitant]
     Dosage: UNK MG, QWK
     Route: 048
     Dates: start: 20060101
  2. ENBREL [Suspect]
     Indication: RHEUMATOID ARTHRITIS
     Dosage: 50 MG, QWK
     Dates: start: 20080919

REACTIONS (11)
  - VEIN DISORDER [None]
  - RHEUMATOID ARTHRITIS [None]
  - ALOPECIA [None]
  - INJECTION SITE PAIN [None]
  - FOOT DEFORMITY [None]
  - INJECTION SITE HAEMORRHAGE [None]
  - PAIN [None]
  - PARAESTHESIA [None]
  - CONTUSION [None]
  - IMPAIRED HEALING [None]
  - BODY HEIGHT DECREASED [None]
